FAERS Safety Report 10230840 (Version 1)
Quarter: 2014Q2

REPORT INFORMATION
  Report Type: Report from Study
  Country: US (occurrence: US)
  Receive Date: 20140611
  Receipt Date: 20140611
  Transmission Date: 20141212
  Serious: Yes (Other)
  Sender: FDA-Public Use
  Company Number: US-SA-2014SA076115

PATIENT
  Sex: Female

DRUGS (2)
  1. MULTAQ [Suspect]
     Indication: PRODUCT USED FOR UNKNOWN INDICATION
  2. MULTAQ [Suspect]
     Indication: PRODUCT USED FOR UNKNOWN INDICATION

REACTIONS (1)
  - Transient ischaemic attack [Unknown]
